FAERS Safety Report 13652609 (Version 1)
Quarter: 2017Q2

REPORT INFORMATION
  Report Type: Spontaneous
  Country: US (occurrence: US)
  Receive Date: 20170614
  Receipt Date: 20170614
  Transmission Date: 20170830
  Serious: Yes (Hospitalization, Other)
  Sender: FDA-Public Use
  Company Number: US-SA-2017SA104887

PATIENT
  Age: 86 Year
  Sex: Male

DRUGS (2)
  1. PRALUENT [Suspect]
     Active Substance: ALIROCUMAB
     Indication: BLOOD CHOLESTEROL
     Route: 058
     Dates: start: 201612
  2. ALIROCUMAB PREFILLED PEN [Concomitant]
     Active Substance: ALIROCUMAB
     Route: 065
     Dates: start: 201612

REACTIONS (4)
  - Myasthenia gravis [Unknown]
  - Coronary artery disease [Unknown]
  - Eye movement disorder [Unknown]
  - Diplopia [Unknown]

NARRATIVE: CASE EVENT DATE: 201702
